FAERS Safety Report 23606237 (Version 3)
Quarter: 2024Q4

REPORT INFORMATION
  Report Type: Report from Study
  Country: NL (occurrence: NL)
  Receive Date: 20240307
  Receipt Date: 20241028
  Transmission Date: 20250114
  Serious: Yes (Other)
  Sender: EMD SERONO INC
  Company Number: NL-Merck Healthcare KGaA-2024011632

PATIENT
  Age: 32 Year
  Sex: Female
  Weight: 84 kg

DRUGS (1)
  1. MAVENCLAD [Suspect]
     Active Substance: CLADRIBINE
     Indication: Relapsing-remitting multiple sclerosis
     Dosage: YEAR ONE WEEK ONE THERAPY.
     Route: 048
     Dates: start: 20230925

REACTIONS (8)
  - White blood cell count decreased [Not Recovered/Not Resolved]
  - Diarrhoea [Recovered/Resolved]
  - Sinusitis [Recovering/Resolving]
  - Ear infection [Recovering/Resolving]
  - Rhinitis [Recovering/Resolving]
  - Vulvovaginal mycotic infection [Not Recovered/Not Resolved]
  - Restlessness [Not Recovered/Not Resolved]
  - Poor quality sleep [Not Recovered/Not Resolved]

NARRATIVE: CASE EVENT DATE: 20231001
